FAERS Safety Report 5405589-1 (Version None)
Quarter: 2007Q3

REPORT INFORMATION
  Report Type: 
  Country: None (occurrence: None)
  Receive Date: 20070803
  Receipt Date: 20070727
  Transmission Date: 20080115
  Serious: Yes (Hospitalization)
  Sender: FDA-Public Use
  Company Number: BR-ABBOTT-07P-020-0375974-00

PATIENT
  Sex: Male

DRUGS (3)
  1. HUMIRA [Suspect]
     Indication: RHEUMATOID ARTHRITIS
     Route: 058
     Dates: start: 20051201, end: 20060531
  2. HUMIRA [Suspect]
     Route: 058
     Dates: start: 20060101
  3. UNKNOWN MEDICATION [Concomitant]
     Indication: PAIN PROPHYLAXIS

REACTIONS (2)
  - JOINT DESTRUCTION [None]
  - MOVEMENT DISORDER [None]
